FAERS Safety Report 6036037-9 (Version None)
Quarter: 2009Q1

REPORT INFORMATION
  Report Type: 
  Country: None (occurrence: None)
  Receive Date: 20090113
  Receipt Date: 20090107
  Transmission Date: 20090719
  Serious: Yes (Disabling)
  Sender: FDA-Public Use
  Company Number: GB-PFIZER INC-2008152571

PATIENT

DRUGS (1)
  1. GABAPENTIN [Suspect]
     Indication: NEURALGIA

REACTIONS (6)
  - AGITATION [None]
  - DEPRESSION [None]
  - DIZZINESS [None]
  - FATIGUE [None]
  - MOOD SWINGS [None]
  - MOTOR DYSFUNCTION [None]
